FAERS Safety Report 22267069 (Version 1)
Quarter: 2023Q2

REPORT INFORMATION
  Report Type: Spontaneous
  Country: US (occurrence: None)
  Receive Date: 20230427
  Receipt Date: 20230427
  Transmission Date: 20230722
  Serious: No
  Sender: FDA-Public Use
  Company Number: None

PATIENT
  Age: 70 Year
  Sex: Male
  Weight: 100.24 kg

DRUGS (14)
  1. EVEROLIMUS [Suspect]
     Active Substance: EVEROLIMUS
     Indication: Brain neoplasm malignant
     Dosage: FREQUENCY : DAILY;?
     Route: 048
  2. ALLOPURINOL [Concomitant]
     Active Substance: ALLOPURINOL
  3. ATIVAN [Concomitant]
     Active Substance: LORAZEPAM
  4. CABOMETYX [Concomitant]
     Active Substance: CABOZANTINIB S-MALATE
  5. INDOMETHACIN [Concomitant]
     Active Substance: INDOMETHACIN
  6. LENVIMA [Concomitant]
     Active Substance: LENVATINIB
  7. MIRALAX [Concomitant]
     Active Substance: POLYETHYLENE GLYCOL 3350
  8. MORPHINE [Concomitant]
     Active Substance: MORPHINE
  9. NEXAVAR [Concomitant]
  10. OXYCODONE [Concomitant]
     Active Substance: OXYCODONE
  11. SYNTHROID [Concomitant]
  12. TUMS [Concomitant]
  13. TYLENOL [Concomitant]
     Active Substance: ACETAMINOPHEN
  14. ZOFRAN [Concomitant]

REACTIONS (1)
  - Disease progression [None]
